FAERS Safety Report 11167534 (Version 2)
Quarter: 2015Q4

REPORT INFORMATION
  Report Type: Spontaneous
  Country: US (occurrence: US)
  Receive Date: 20150605
  Receipt Date: 20151016
  Transmission Date: 20160304
  Serious: Yes (Death, Other)
  Sender: FDA-Public Use
  Company Number: US-UCBSA-2015017699

PATIENT
  Age: 53 Year
  Sex: Male
  Weight: 79.36 kg

DRUGS (3)
  1. KEPPRA [Concomitant]
     Active Substance: LEVETIRACETAM
     Indication: PRODUCT USED FOR UNKNOWN INDICATION
     Dosage: UNK
  2. KEPPRA XR [Suspect]
     Active Substance: LEVETIRACETAM
     Indication: SEIZURE
     Dosage: 750MG 2 TABLETS DAILY
     Route: 048
     Dates: start: 20090801, end: 20150514
  3. LAMICTAL [Concomitant]
     Active Substance: LAMOTRIGINE
     Indication: SEIZURE

REACTIONS (4)
  - Blood cholesterol increased [Fatal]
  - Myocardial infarction [Fatal]
  - Arteriosclerosis [Fatal]
  - Road traffic accident [Fatal]

NARRATIVE: CASE EVENT DATE: 20150514
